FAERS Safety Report 14955844 (Version 2)
Quarter: 2018Q2

REPORT INFORMATION
  Report Type: Spontaneous
  Country: US (occurrence: US)
  Receive Date: 20180531
  Receipt Date: 20180531
  Transmission Date: 20180711
  Serious: No
  Sender: FDA-Public Use
  Company Number: US-AUROBINDO-AUR-APU-2018-016712

PATIENT
  Age: 75 Year
  Sex: Male
  Weight: 79.37 kg

DRUGS (1)
  1. ONDANSETRON ORALLY DISINTEGRATING TABLETS USP 4 MG [Suspect]
     Active Substance: ONDANSETRON
     Indication: NAUSEA
     Dosage: 4 MILLIGRAM
     Route: 048
     Dates: start: 20180315, end: 20180318

REACTIONS (3)
  - Dizziness [Recovered/Resolved]
  - Headache [Recovered/Resolved]
  - Diarrhoea [Recovered/Resolved]

NARRATIVE: CASE EVENT DATE: 20180316
